FAERS Safety Report 16695654 (Version 1)
Quarter: 2019Q3

REPORT INFORMATION
  Report Type: Spontaneous
  Country: CA (occurrence: CA)
  Receive Date: 20190813
  Receipt Date: 20190813
  Transmission Date: 20191004
  Serious: Yes (Other)
  Sender: FDA-Public Use
  Company Number: CA-TEVA-2019-CA-1090819

PATIENT
  Age: 74 Year
  Sex: Female

DRUGS (4)
  1. ISONIAZID. [Concomitant]
     Active Substance: ISONIAZID
     Indication: TUBERCULOSIS
  2. PLAQUENIL [Concomitant]
     Active Substance: HYDROXYCHLOROQUINE SULFATE
     Indication: RHEUMATOID ARTHRITIS
  3. METHOTREXATE. [Suspect]
     Active Substance: METHOTREXATE
     Indication: RHEUMATOID ARTHRITIS
     Route: 065
  4. VITAMIN B5 [CALCIUM PANTOTHENATE] [Concomitant]
     Indication: TUBERCULOSIS

REACTIONS (4)
  - Dental caries [Not Recovered/Not Resolved]
  - Condition aggravated [Not Recovered/Not Resolved]
  - Interstitial lung disease [Not Recovered/Not Resolved]
  - Quality of life decreased [Not Recovered/Not Resolved]
